FAERS Safety Report 12599867 (Version 1)
Quarter: 2016Q3

REPORT INFORMATION
  Report Type: Spontaneous
  Country: IE (occurrence: IE)
  Receive Date: 20160727
  Receipt Date: 20160727
  Transmission Date: 20161109
  Serious: Yes (Other)
  Sender: FDA-Public Use
  Company Number: IE-PFIZER INC-2016357747

PATIENT
  Age: 57 Year
  Sex: Female

DRUGS (1)
  1. TOVIAZ [Suspect]
     Active Substance: FESOTERODINE FUMARATE
     Indication: POLLAKIURIA
     Dosage: 4 MG, UNK
     Dates: start: 20160716, end: 20160718

REACTIONS (3)
  - Kidney infection [Unknown]
  - Burning sensation [Unknown]
  - Urine output increased [Unknown]
